FAERS Safety Report 20353641 (Version 1)
Quarter: 2022Q1

REPORT INFORMATION
  Report Type: Spontaneous
  Country: US (occurrence: None)
  Receive Date: 20220120
  Receipt Date: 20220120
  Transmission Date: 20220423
  Serious: No
  Sender: FDA-Public Use
  Company Number: US-USWM, LLC-UWM202103-000020

PATIENT
  Sex: Male

DRUGS (1)
  1. NADOLOL [Suspect]
     Active Substance: NADOLOL
     Indication: Product used for unknown indication

REACTIONS (1)
  - Ventricular extrasystoles [Unknown]
